FAERS Safety Report 6510287-7 (Version None)
Quarter: 2009Q4

REPORT INFORMATION
  Report Type: 
  Country: None (occurrence: None)
  Receive Date: 20091222
  Receipt Date: 20090924
  Transmission Date: 20100525
  Serious: No
  Sender: FDA-Public Use
  Company Number: US-ASTRAZENECA-2009SE15189

PATIENT
  Age: 24448 Day
  Sex: Male
  Weight: 54.9 kg

DRUGS (7)
  1. CRESTOR [Suspect]
     Indication: ARTERIOSCLEROSIS
     Route: 048
     Dates: start: 20050101, end: 20090801
  2. CRESTOR [Interacting]
     Route: 048
     Dates: start: 20090801
  3. COUMADIN [Interacting]
     Indication: CONGENITAL HEART VALVE DISORDER
  4. METFORMIN HCL [Concomitant]
     Indication: DIABETES MELLITUS
  5. GLYBURIDE [Concomitant]
     Indication: DIABETES MELLITUS
  6. DIGOXIN [Concomitant]
  7. CLINORIL [Concomitant]
     Indication: HYPERTENSION

REACTIONS (2)
  - DRUG INTERACTION [None]
  - DRUG LEVEL DECREASED [None]
